FAERS Safety Report 10591924 (Version 4)
Quarter: 2015Q2

REPORT INFORMATION
  Report Type: Spontaneous
  Country: CA (occurrence: CA)
  Receive Date: 20141119
  Receipt Date: 20150406
  Transmission Date: 20150821
  Serious: Yes (Hospitalization)
  Sender: FDA-Public Use
  Company Number: CA-ROCHE-1491761

PATIENT
  Age: 75 Year
  Sex: Female
  Weight: 61 kg

DRUGS (17)
  1. XOLAIR [Suspect]
     Active Substance: OMALIZUMAB
     Route: 058
     Dates: start: 20140424
  2. CARBOCAL [Concomitant]
     Active Substance: CALCIUM CARBONATE
  3. PREMARIN [Concomitant]
     Active Substance: ESTROGENS, CONJUGATED
  4. XOLAIR [Suspect]
     Active Substance: OMALIZUMAB
     Route: 058
     Dates: start: 20150129
  5. PREDNISONE. [Concomitant]
     Active Substance: PREDNISONE
  6. XOLAIR [Suspect]
     Active Substance: OMALIZUMAB
     Route: 058
     Dates: start: 20090414
  7. XOLAIR [Suspect]
     Active Substance: OMALIZUMAB
     Route: 058
     Dates: start: 20120927
  8. XOLAIR [Suspect]
     Active Substance: OMALIZUMAB
     Route: 058
     Dates: start: 20141106
  9. VENTOLIN [Concomitant]
     Active Substance: ALBUTEROL SULFATE
  10. CETIRIZINE [Concomitant]
     Active Substance: CETIRIZINE HYDROCHLORIDE
  11. FLU VACCINE [Concomitant]
     Active Substance: INFLUENZA VIRUS VACCINE
  12. XOLAIR [Suspect]
     Active Substance: OMALIZUMAB
     Route: 058
     Dates: start: 20131205
  13. XOLAIR [Suspect]
     Active Substance: OMALIZUMAB
     Route: 058
     Dates: start: 20141009
  14. INIBACE PLUS [Concomitant]
  15. XOLAIR [Suspect]
     Active Substance: OMALIZUMAB
     Indication: ASTHMA
     Route: 058
     Dates: start: 20080124
  16. SYMBICORT [Concomitant]
     Active Substance: BUDESONIDE\FORMOTEROL FUMARATE DIHYDRATE
  17. SINGULAIR [Concomitant]
     Active Substance: MONTELUKAST SODIUM

REACTIONS (10)
  - Contusion [Unknown]
  - Blood pressure abnormal [Not Recovered/Not Resolved]
  - Weight decreased [Unknown]
  - Upper-airway cough syndrome [Unknown]
  - Malaise [Unknown]
  - Blood pressure systolic increased [Recovered/Resolved]
  - Blood cholesterol increased [Unknown]
  - Glucose tolerance impaired [Unknown]
  - Sinusitis [Unknown]
  - Ecchymosis [Unknown]

NARRATIVE: CASE EVENT DATE: 20121011
